FAERS Safety Report 8835307 (Version 3)
Quarter: 2016Q1

REPORT INFORMATION
  Report Type: Report from Study
  Country: DE (occurrence: DE)
  Receive Date: 20121011
  Receipt Date: 20160222
  Transmission Date: 20160526
  Serious: Yes (Hospitalization)
  Sender: FDA-Public Use
  Company Number: DE-ROCHE-1143540

PATIENT
  Age: 69 Year
  Sex: Female
  Weight: 64 kg

DRUGS (5)
  1. BEVACIZUMAB [Suspect]
     Active Substance: BEVACIZUMAB
     Indication: OVARIAN CANCER
     Dosage: LAST DOSE PRIOR TO EVENT 14/SEP/2012
     Route: 042
     Dates: start: 20120914
  2. ANTRA [Suspect]
     Active Substance: OMEPRAZOLE
     Indication: OVARIAN CANCER
     Dosage: LAST DOSE PRIOR TO EVENT 26/SEP/2012
     Route: 048
     Dates: start: 20120914
  3. FORTECORTIN [Suspect]
     Active Substance: DEXAMETHASONE
     Indication: OVARIAN CANCER
     Dosage: LAST DOSE PRIOR TO EVENT 14/SEP/2012
     Route: 048
     Dates: start: 20120914
  4. PACLITAXEL. [Suspect]
     Active Substance: PACLITAXEL
     Indication: OVARIAN CANCER
     Dosage: LAST DOSE PRIOR TO EVENT 14/SEP/2012
     Route: 042
     Dates: start: 20120914
  5. CARBOPLATIN. [Suspect]
     Active Substance: CARBOPLATIN
     Indication: OVARIAN CANCER
     Dosage: LAST DOSE PRIOR TO EVENT 14/SEP/2012
     Route: 042
     Dates: start: 20120914

REACTIONS (3)
  - Arthralgia [Recovered/Resolved]
  - Thrombosis [Recovering/Resolving]
  - Joint swelling [Recovered/Resolved]

NARRATIVE: CASE EVENT DATE: 20120927
